FAERS Safety Report 23676742 (Version 3)
Quarter: 2024Q2

REPORT INFORMATION
  Report Type: Report from Study
  Country: US (occurrence: US)
  Receive Date: 20240327
  Receipt Date: 20240409
  Transmission Date: 20240716
  Serious: Yes (Other)
  Sender: FDA-Public Use
  Company Number: US-AstraZeneca-CH-00589165A

PATIENT
  Sex: Female

DRUGS (1)
  1. SOLIRIS [Suspect]
     Active Substance: ECULIZUMAB
     Indication: Neuromyelitis optica spectrum disorder
     Dosage: UNK
     Route: 042
     Dates: start: 20240307

REACTIONS (7)
  - Sudden hearing loss [Unknown]
  - Ear infection [Unknown]
  - Nasopharyngitis [Unknown]
  - Cystitis [Unknown]
  - Aphonia [Unknown]
  - Aphasia [Unknown]
  - Inflammation [Unknown]
